FAERS Safety Report 19903258 (Version 1)
Quarter: 2021Q4

REPORT INFORMATION
  Report Type: Spontaneous
  Country: US (occurrence: US)
  Receive Date: 20211001
  Receipt Date: 20211001
  Transmission Date: 20220303
  Serious: Yes (Life-Threatening, Other)
  Sender: FDA-Public Use
  Company Number: US-GE HEALTHCARE LIFE SCIENCES-2021CSU004848

PATIENT
  Age: 61 Year
  Sex: Male

DRUGS (18)
  1. OMNIPAQUE [Suspect]
     Active Substance: IOHEXOL
     Indication: Angiogram
     Dosage: UNK UNK, SINGLE
     Route: 013
     Dates: start: 2008, end: 2008
  2. OMNIPAQUE [Suspect]
     Active Substance: IOHEXOL
     Indication: Percutaneous coronary intervention
     Dosage: UNK UNK, SINGLE
     Route: 013
     Dates: start: 2009, end: 2009
  3. OMNIPAQUE [Suspect]
     Active Substance: IOHEXOL
     Indication: Angina unstable
     Dosage: UNK UNK, SINGLE
     Route: 013
     Dates: start: 2014, end: 2014
  4. OMNIPAQUE [Suspect]
     Active Substance: IOHEXOL
     Dosage: UNK UNK, SINGLE
     Route: 013
     Dates: start: 2017, end: 2017
  5. OMNIPAQUE [Suspect]
     Active Substance: IOHEXOL
     Dosage: UNK UNK, SINGLE
     Route: 013
     Dates: start: 2018, end: 2018
  6. OMNIPAQUE [Suspect]
     Active Substance: IOHEXOL
     Dosage: UNK UNK, SINGLE
     Route: 013
     Dates: start: 2018, end: 2018
  7. METHYLPREDNISOLONE [Concomitant]
     Active Substance: METHYLPREDNISOLONE
     Dosage: 125 MG, EVERY 12 HOURS (3 DAYS PRIOR TO OMNIPAQUE ADMINISTRATION)
     Route: 042
     Dates: start: 2016, end: 2016
  8. METHYLPREDNISOLONE [Concomitant]
     Active Substance: METHYLPREDNISOLONE
     Dosage: 125 MG, EVERY 12 HOURS (3 DAYS PRIOR TO OMNIPAQUE ADMINISTRATION)
     Route: 042
     Dates: start: 2017, end: 2017
  9. METHYLPREDNISOLONE [Concomitant]
     Active Substance: METHYLPREDNISOLONE
     Dosage: 125 MG, EVERY 12 HOURS (3 DAYS PRIOR TO OMNIPAQUE ADMINISTRATION)
     Route: 042
     Dates: start: 2018, end: 2018
  10. METHYLPREDNISOLONE [Concomitant]
     Active Substance: METHYLPREDNISOLONE
     Dosage: 125 MG, EVERY 12 HOURS (3 DAYS PRIOR TO OMNIPAQUE ADMINISTRATION)
     Route: 042
     Dates: start: 2018, end: 2018
  11. DIPHENHYDRAMINE [Concomitant]
     Active Substance: DIPHENHYDRAMINE
     Dosage: 50 MG, TWICE A DAY (3 DAYS DAYS PRIOR TO OMNIPAQUE ADMINISTRATION)
     Route: 048
     Dates: start: 2016, end: 2016
  12. DIPHENHYDRAMINE [Concomitant]
     Active Substance: DIPHENHYDRAMINE
     Dosage: 50 MG, TWICE A DAY (3 DAYS DAYS PRIOR TO OMNIPAQUE ADMINISTRATION)
     Route: 048
     Dates: start: 2017, end: 2017
  13. DIPHENHYDRAMINE [Concomitant]
     Active Substance: DIPHENHYDRAMINE
     Dosage: 50 MG, TWICE A DAY (3 DAYS DAYS PRIOR TO OMNIPAQUE ADMINISTRATION)
     Route: 048
     Dates: start: 2018, end: 2018
  14. DIPHENHYDRAMINE [Concomitant]
     Active Substance: DIPHENHYDRAMINE
     Dosage: 50 MG, TWICE A DAY (3 DAYS DAYS PRIOR TO OMNIPAQUE ADMINISTRATION)
     Route: 048
     Dates: start: 2018, end: 2018
  15. FAMOTIDINE [Concomitant]
     Active Substance: FAMOTIDINE
     Dosage: 20 MG, DAILY (3 DYAS PRIOR TO OMNIPAQUE ADMINISTRATION)
     Route: 048
     Dates: start: 2016, end: 2016
  16. FAMOTIDINE [Concomitant]
     Active Substance: FAMOTIDINE
     Dosage: 20 MG, DAILY (3 DYAS PRIOR TO OMNIPAQUE ADMINISTRATION)
     Route: 048
     Dates: start: 2017, end: 2017
  17. FAMOTIDINE [Concomitant]
     Active Substance: FAMOTIDINE
     Dosage: 20 MG, DAILY (3 DYAS PRIOR TO OMNIPAQUE ADMINISTRATION)
     Route: 048
     Dates: start: 2018, end: 2018
  18. FAMOTIDINE [Concomitant]
     Active Substance: FAMOTIDINE
     Dosage: 20 MG, DAILY (3 DYAS PRIOR TO OMNIPAQUE ADMINISTRATION)
     Route: 048
     Dates: start: 2018, end: 2018

REACTIONS (7)
  - Contrast media reaction [Recovered/Resolved]
  - Hypotension [Recovered/Resolved]
  - Hypotension [Recovered/Resolved]
  - Hypotension [Recovered/Resolved]
  - Blood pressure systolic decreased [Recovered/Resolved]
  - Hypotension [Recovered/Resolved]
  - Hypotension [Recovered/Resolved]

NARRATIVE: CASE EVENT DATE: 20080101
